FAERS Safety Report 4863965-X (Version None)
Quarter: 2005Q4

REPORT INFORMATION
  Report Type: 
  Country: None (occurrence: None)
  Receive Date: 20051219
  Receipt Date: 20051206
  Transmission Date: 20060501
  Serious: Yes (Hospitalization)
  Sender: FDA-Public Use
  Company Number: HQWYE893707DEC05

PATIENT
  Age: 82 Year
  Sex: Female

DRUGS (6)
  1. CORDARONE [Suspect]
     Indication: ATRIAL FIBRILLATION
     Dosage: 200 MG 5X 1 PER WK
     Route: 048
  2. PAROXETINE HYDROCHLORIDE [Suspect]
     Dosage: 20 MG 1X PER 1 DAY
     Route: 048
  3. MODOPAR (BENSERAZIDE HYDROCHLORIDE/LEVODOPA) [Suspect]
     Dosage: 375 MG 1X PER 1 DAY
     Route: 048
     Dates: end: 20050930
  4. OFLOXACIN [Suspect]
     Dosage: 400 MG 1X PER 1 DAY
     Route: 048
     Dates: end: 20050930
  5. PREVISCAN (FLUINDIONE) [Suspect]
     Dosage: 10 MG 1X PER 1 DAY
     Route: 048
     Dates: end: 20050921
  6. TAREG (VALSARTAN) [Suspect]
     Dosage: 40 MG 1X PER 1 DAY
     Route: 048

REACTIONS (3)
  - BLOOD IRON DECREASED [None]
  - NORMOCHROMIC NORMOCYTIC ANAEMIA [None]
  - SERUM FERRITIN INCREASED [None]
